FAERS Safety Report 6592714-2 (Version None)
Quarter: 2010Q1

REPORT INFORMATION
  Report Type: 
  Country: None (occurrence: None)
  Receive Date: 20100212
  Receipt Date: 20100127
  Transmission Date: 20100710
  Serious: Yes (Other)
  Sender: FDA-Public Use
  Company Number: 2010-0359

PATIENT
  Age: 13 Year
  Sex: Female

DRUGS (1)
  1. INCRELEX [Suspect]
     Indication: CROHN'S DISEASE
     Dosage: 12 HOURLY

REACTIONS (1)
  - HYPOGLYCAEMIA [None]
